FAERS Safety Report 14502581 (Version 1)
Quarter: 2018Q1

REPORT INFORMATION
  Report Type: Spontaneous
  Country: US (occurrence: US)
  Receive Date: 20180208
  Receipt Date: 20180208
  Transmission Date: 20180509
  Serious: No
  Sender: FDA-Public Use
  Company Number: US-LUPIN PHARMACEUTICALS INC.-2017-06822

PATIENT
  Age: 14 Year
  Sex: Female
  Weight: 68 kg

DRUGS (3)
  1. ESTRADIOL-NORETHINDRONE ACETATE 1/0.2 (GRANDMARK PHARMA) [Concomitant]
     Indication: CONTRACEPTION
     Dosage: 1 DF, QD, AT NIGHT,
     Route: 048
  2. ESCITALOPRAM OXALATE TABLETS USP, 5 MG [Suspect]
     Active Substance: ESCITALOPRAM OXALATE
     Indication: DEPRESSION
     Dosage: 5 MG, QD, IN MORNING
     Route: 048
     Dates: start: 20171005
  3. ESCITALOPRAM OXALATE TABLETS USP, 5 MG [Suspect]
     Active Substance: ESCITALOPRAM OXALATE
     Indication: ANXIETY

REACTIONS (3)
  - Drug effect incomplete [Unknown]
  - Nausea [Not Recovered/Not Resolved]
  - Diarrhoea [Not Recovered/Not Resolved]

NARRATIVE: CASE EVENT DATE: 20171031
